FAERS Safety Report 14760057 (Version 2)
Quarter: 2018Q2

REPORT INFORMATION
  Report Type: Spontaneous
  Country: GB (occurrence: DE)
  Receive Date: 20180413
  Receipt Date: 20180419
  Transmission Date: 20180711
  Serious: Yes (Other)
  Sender: FDA-Public Use
  Company Number: DE-FRESENIUS KABI-FK201804251

PATIENT
  Sex: Female
  Weight: 43 kg

DRUGS (6)
  1. FLUOROURACIL MEDAC [Concomitant]
     Active Substance: FLUOROURACIL
     Indication: ADENOCARCINOMA OF COLON
     Route: 042
     Dates: start: 20160509, end: 20161010
  2. ONCOFOLIC [Concomitant]
     Active Substance: FOLATE SODIUM
     Indication: ADENOCARCINOMA OF COLON
     Route: 042
     Dates: start: 20160509, end: 20161010
  3. GRANISETRON [Concomitant]
     Active Substance: GRANISETRON
     Indication: PREMEDICATION
     Route: 065
  4. OXALIPLATIN (MANUFACTURER UNKNOWN) [Suspect]
     Active Substance: OXALIPLATIN
     Indication: ADENOCARCINOMA OF COLON
     Route: 042
     Dates: start: 20160425
  5. ONCOFOLIC [Concomitant]
     Active Substance: FOLATE SODIUM
     Route: 042
     Dates: start: 20160426
  6. OXALIPLATIN (MANUFACTURER UNKNOWN) [Suspect]
     Active Substance: OXALIPLATIN
     Route: 042
     Dates: start: 20161010

REACTIONS (2)
  - Thrombotic thrombocytopenic purpura [Recovered/Resolved]
  - Leukocytosis [Recovered/Resolved]

NARRATIVE: CASE EVENT DATE: 20160509
